FAERS Safety Report 5899976-5 (Version None)
Quarter: 2008Q3

REPORT INFORMATION
  Report Type: 
  Country: None (occurrence: None)
  Receive Date: 20080926
  Receipt Date: 20080922
  Transmission Date: 20090109
  Serious: Yes (Other)
  Sender: FDA-Public Use
  Company Number: B0538269A

PATIENT
  Age: 84 Year
  Sex: Male

DRUGS (2)
  1. AVODART [Suspect]
     Indication: BENIGN PROSTATIC HYPERPLASIA
     Route: 065
  2. TEGRETOL [Suspect]
     Indication: PAIN
     Route: 065

REACTIONS (3)
  - CARBOHYDRATE ANTIGEN 15-3 INCREASED [None]
  - GYNAECOMASTIA [None]
  - TUMOUR MARKER INCREASED [None]
